FAERS Safety Report 20223292 (Version 1)
Quarter: 2021Q4

REPORT INFORMATION
  Report Type: Report from Study
  Country: US (occurrence: US)
  Receive Date: 20211223
  Receipt Date: 20211223
  Transmission Date: 20220303
  Serious: No
  Sender: FDA-Public Use
  Company Number: US-KYOWAKIRIN-2021BKK021222

PATIENT

DRUGS (2)
  1. CRYSVITA [Suspect]
     Active Substance: BUROSUMAB-TWZA
     Indication: Hereditary hypophosphataemic rickets
     Dosage: STRENGTH 20 AND 30 MG/ML COMBINED TO ACHIEVE DOSE OF 80 MG, EVERY 4 WEEKS
     Route: 058
     Dates: start: 20200804
  2. CRYSVITA [Suspect]
     Active Substance: BUROSUMAB-TWZA
     Indication: Hereditary hypophosphataemic rickets
     Dosage: STRENGTH 20 AND 30 MG/ML COMBINED TO ACHIEVE DOSE OF 80 MG, EVERY 4 WEEKS
     Route: 058
     Dates: start: 20200804

REACTIONS (1)
  - Upper respiratory tract infection [Unknown]
